FAERS Safety Report 10703900 (Version 3)
Quarter: 2015Q1

REPORT INFORMATION
  Report Type: Spontaneous
  Country: US (occurrence: US)
  Receive Date: 20150112
  Receipt Date: 20150116
  Transmission Date: 20150721
  Serious: Yes (Death, Hospitalization)
  Sender: FDA-Public Use
  Company Number: US-UNITED THERAPEUTICS-UNT-2014-011764

PATIENT
  Age: 72 Year
  Sex: Female
  Weight: 78.91 kg

DRUGS (5)
  1. REVATIO [Concomitant]
     Active Substance: SILDENAFIL CITRATE
     Indication: PRODUCT USED FOR UNKNOWN INDICATION
  2. LETAIRIS [Concomitant]
     Active Substance: AMBRISENTAN
     Indication: PRODUCT USED FOR UNKNOWN INDICATION
  3. REMODULIN [Suspect]
     Active Substance: TREPROSTINIL
     Dosage: 0.023 ?G/KG/MIN, CONTINUING
     Route: 041
     Dates: start: 20141219
  4. REMODULIN [Suspect]
     Active Substance: TREPROSTINIL
     Indication: PULMONARY HYPERTENSION
     Dosage: 0.020 ?G/KG, CONTINUING
     Route: 041
     Dates: start: 20141119
  5. REMODULIN [Suspect]
     Active Substance: TREPROSTINIL
     Dosage: 0.023 ?G/KG/MIN, CONTINUING
     Route: 041
     Dates: start: 20141208

REACTIONS (9)
  - Chest discomfort [Unknown]
  - Headache [Unknown]
  - Head discomfort [Unknown]
  - Abdominal discomfort [Unknown]
  - Electrolyte imbalance [Unknown]
  - Cardiac flutter [Unknown]
  - Death [Fatal]
  - Diarrhoea [Unknown]
  - Prescribed overdose [Unknown]

NARRATIVE: CASE EVENT DATE: 201411
